FAERS Safety Report 24174769 (Version 1)
Quarter: 2024Q3

REPORT INFORMATION
  Report Type: Spontaneous
  Country: GB (occurrence: None)
  Receive Date: 20240805
  Receipt Date: 20240805
  Transmission Date: 20241017
  Serious: Yes (Death, Hospitalization, Other)
  Sender: ASTRAZENECA
  Company Number: 2024A176989

PATIENT
  Age: 89 Year

DRUGS (6)
  1. OMEPRAZOLE [Suspect]
     Active Substance: OMEPRAZOLE
     Dosage: 20.0MG UNKNOWN
     Route: 048
  2. BISOPROLOL [Concomitant]
     Active Substance: BISOPROLOL\BISOPROLOL FUMARATE
  3. DICLOFENAC SODIUM [Concomitant]
     Active Substance: DICLOFENAC\DICLOFENAC SODIUM
     Dosage: 1.16 PERCENT
  4. APIXABAN [Concomitant]
     Active Substance: APIXABAN
     Dosage: TAKE ONE TWICE A DAY
  5. LATANOPROST [Concomitant]
     Active Substance: LATANOPROST
     Dosage: 1 DROP B/E ON
  6. SIMVASTATIN [Concomitant]
     Active Substance: SIMVASTATIN

REACTIONS (3)
  - General physical health deterioration [Fatal]
  - Hyponatraemia [Unknown]
  - Fall [Unknown]
